FAERS Safety Report 10617396 (Version 10)
Quarter: 2015Q2

REPORT INFORMATION
  Report Type: Report from Study
  Country: CH (occurrence: CH)
  Receive Date: 20141201
  Receipt Date: 20150428
  Transmission Date: 20150821
  Serious: Yes (Hospitalization)
  Sender: FDA-Public Use
  Company Number: CH-009507513-1411CHE011356

PATIENT
  Age: 73 Year
  Sex: Female

DRUGS (9)
  1. TOREM [Concomitant]
     Active Substance: TORSEMIDE
  2. NEO-MERCAZOLE [Concomitant]
     Active Substance: CARBIMAZOLE
     Dosage: FREQUENCY: 1-0-0
     Route: 048
  3. SIMCARD [Concomitant]
     Indication: HYPERCHOLESTEROLAEMIA
     Dosage: FREQUENCY: 0-0-1
     Route: 048
  4. TRIATEC (RAMIPRIL) [Concomitant]
     Active Substance: RAMIPRIL
     Dosage: FREQUENCY REPORTED AS 1-0-0
     Route: 048
  5. NOVALGIN (DIPYRONE) [Concomitant]
     Active Substance: DIPYRONE
  6. PEMBROLIZUMAB. [Suspect]
     Active Substance: PEMBROLIZUMAB
     Indication: METASTATIC MALIGNANT MELANOMA
     Dosage: 2 MG/KG, Q3W
     Route: 042
     Dates: start: 20140718, end: 20141010
  7. SIMCORA [Concomitant]
     Active Substance: SIMVASTATIN
     Dosage: FRQUENCY 0-0-1, STRENGTH 20 MG
  8. TENOTEC [Concomitant]
     Dosage: FREQUENCY: 1-0-0
     Route: 048
  9. TRAMAL [Concomitant]
     Active Substance: TRAMADOL

REACTIONS (3)
  - Myocarditis [Recovered/Resolved with Sequelae]
  - Ejection fraction decreased [Recovering/Resolving]
  - Arrhythmia [Recovering/Resolving]

NARRATIVE: CASE EVENT DATE: 20141031
